FAERS Safety Report 5431307-7 (Version None)
Quarter: 2007Q3

REPORT INFORMATION
  Report Type: 
  Country: None (occurrence: None)
  Receive Date: 20070830
  Receipt Date: 20070515
  Transmission Date: 20080115
  Serious: Yes (Hospitalization)
  Sender: FDA-Public Use
  Company Number: A0646999A

PATIENT
  Age: 42 Year
  Sex: Female

DRUGS (10)
  1. WELLBUTRIN XL [Suspect]
     Indication: DEPRESSION
     Dosage: 150MG PER DAY
     Route: 048
     Dates: start: 20050901, end: 20070328
  2. OXYMORPHONE [Concomitant]
  3. SINGULAIR [Concomitant]
  4. METFORMIN HCL [Concomitant]
  5. ESTRADIOL [Concomitant]
  6. XANAX [Concomitant]
  7. CELEXA [Concomitant]
  8. RESTORIL [Concomitant]
  9. ZANTAC 150 [Concomitant]
  10. POTASSIUM CHLORIDE [Concomitant]

REACTIONS (3)
  - CONSTIPATION [None]
  - DRY MOUTH [None]
  - VOMITING [None]
